FAERS Safety Report 8176203-X (Version None)
Quarter: 2012Q1

REPORT INFORMATION
  Report Type: 
  Country: None (occurrence: None)
  Receive Date: 20120301
  Receipt Date: 20111222
  Transmission Date: 20120608
  Serious: Yes (Hospitalization)
  Sender: FDA-Public Use
  Company Number: CA-JNJFOC-20120111424

PATIENT
  Sex: Female
  Weight: 79 kg

DRUGS (3)
  1. PANTOPRAZOLE [Concomitant]
     Route: 065
  2. REMICADE [Suspect]
     Indication: PRODUCT USED FOR UNKNOWN INDICATION
     Dosage: 100 MG PER VIAL
     Route: 042
  3. MESALAMINE [Concomitant]
     Route: 065

REACTIONS (4)
  - VOMITING [None]
  - NAUSEA [None]
  - MALAISE [None]
  - ABDOMINAL PAIN [None]
